FAERS Safety Report 23799295 (Version 2)
Quarter: 2025Q3

REPORT INFORMATION
  Report Type: Report from Study
  Country: ZA (occurrence: ZA)
  Receive Date: 20240430
  Receipt Date: 20250805
  Transmission Date: 20251020
  Serious: Yes (Other)
  Sender: ABBVIE
  Company Number: ZA-ABBOTT-2024A-1380811

PATIENT
  Age: 78 Year
  Sex: Female

DRUGS (7)
  1. CREON [Suspect]
     Active Substance: PANCRELIPASE AMYLASE\PANCRELIPASE LIPASE\PANCRELIPASE PROTEASE
     Indication: Cystic fibrosis
     Dosage: 150 MGTAKE ONE CAPSULE THREE TIMES A DAY?10000 (MULTIENZYMES)
     Route: 048
  2. ZOLPIDEM TARTRATE [Concomitant]
     Active Substance: ZOLPIDEM TARTRATE
     Indication: Insomnia
     Dosage: 10 MG TAKE ONE TABLET AT NIGHT
     Route: 048
  3. LASIX [Concomitant]
     Active Substance: FUROSEMIDE
     Indication: Hypertension
     Dosage: 20 MG TAKE ONE TABLET DAILY
     Route: 048
  4. PROCHLORPERAZINE MALEATE [Concomitant]
     Active Substance: PROCHLORPERAZINE MALEATE
     Indication: Nausea
     Dosage: 5 MG TAKE ONE TABLET THREE TIMES A DAY
     Route: 048
  5. CHOLESTYRAMINE [Concomitant]
     Active Substance: CHOLESTYRAMINE
     Indication: Hyperlipidaemia
     Route: 048
  6. LEVOTHYROXINE [Concomitant]
     Active Substance: LEVOTHYROXINE
     Indication: Hypothyroidism
     Dosage: 100 MCG TAKE ONE TABLET DAILY
     Route: 048
  7. Domadol [Concomitant]
     Indication: Pain
     Dosage: 50 MG TAKE ONE CAPSULE THREE TIMES A DAY
     Route: 048

REACTIONS (1)
  - Neoplasm malignant [Unknown]
